FAERS Safety Report 8243635-0 (Version None)
Quarter: 2012Q1

REPORT INFORMATION
  Report Type: 
  Country: None (occurrence: None)
  Receive Date: 20120329
  Receipt Date: 20120321
  Transmission Date: 20120608
  Serious: Yes (Other)
  Sender: FDA-Public Use
  Company Number: PT-JNJFOC-20100906236

PATIENT
  Age: 40 Year
  Sex: Female

DRUGS (11)
  1. ATORVASTATIN CALCIUM [Concomitant]
     Indication: HYPERCHOLESTEROLAEMIA
  2. METFORMIN HCL [Concomitant]
  3. INFLIXIMAB, RECOMBINANT [Suspect]
     Dosage: WEEK 0
     Route: 042
     Dates: start: 20100601
  4. INFLIXIMAB, RECOMBINANT [Suspect]
     Indication: HIDRADENITIS
     Dosage: WEEK 6
     Route: 042
  5. EZETIMIBE [Concomitant]
     Indication: HYPERCHOLESTEROLAEMIA
  6. SULFASALAZINE [Concomitant]
     Indication: BEHCET'S SYNDROME
  7. INFLIXIMAB, RECOMBINANT [Suspect]
     Dosage: WEEK 2
     Route: 042
  8. INFLIXIMAB, RECOMBINANT [Suspect]
     Indication: BEHCET'S SYNDROME
     Dosage: WEEK 6
     Route: 042
  9. INFLIXIMAB, RECOMBINANT [Suspect]
     Dosage: WEEK 2
     Route: 042
  10. ANTIHYPERTENSIVE [Concomitant]
     Indication: HYPERTENSION
  11. INFLIXIMAB, RECOMBINANT [Suspect]
     Dosage: WEEK 0
     Route: 042
     Dates: start: 20100601

REACTIONS (3)
  - WEIGHT INCREASED [None]
  - BLOOD CHOLESTEROL INCREASED [None]
  - GLYCOSYLATED HAEMOGLOBIN INCREASED [None]
